FAERS Safety Report 6086727-7 (Version None)
Quarter: 2009Q1

REPORT INFORMATION
  Report Type: 
  Country: None (occurrence: None)
  Receive Date: 20090211
  Receipt Date: 20090128
  Transmission Date: 20090719
  Serious: Yes (Other)
  Sender: FDA-Public Use
  Company Number: CHPA2009US01303

PATIENT
  Age: 56 Year
  Sex: Male
  Weight: 79.4 kg

DRUGS (1)
  1. 4 WAY FAST ACTING NASAL SPRAY (NCH) (PHENYLEPHRINE) NASAL SPRAY [Suspect]
     Indication: UPPER RESPIRATORY TRACT INFECTION
     Dosage: EVERY HALF HOUR, NASAL
     Route: 045
     Dates: start: 20080901

REACTIONS (13)
  - BLOOD PRESSURE INCREASED [None]
  - DRUG DEPENDENCE [None]
  - DRY MOUTH [None]
  - DYSPHAGIA [None]
  - DYSPNOEA [None]
  - EATING DISORDER SYMPTOM [None]
  - EYE SWELLING [None]
  - INAPPROPRIATE SCHEDULE OF DRUG ADMINISTRATION [None]
  - INSOMNIA [None]
  - INTENTIONAL DRUG MISUSE [None]
  - NASAL CONGESTION [None]
  - PAIN [None]
  - PHARYNGEAL OEDEMA [None]
